FAERS Safety Report 15463741 (Version 1)
Quarter: 2018Q4

REPORT INFORMATION
  Report Type: Spontaneous
  Country: DE (occurrence: DE)
  Receive Date: 20181004
  Receipt Date: 20181004
  Transmission Date: 20190204
  Serious: Yes (Hospitalization, Other)
  Sender: FDA-Public Use
  Company Number: DE-UCBSA-2018043331

PATIENT
  Age: 83 Year
  Sex: Female
  Weight: 48 kg

DRUGS (11)
  1. LEVETIRACETAM. [Suspect]
     Active Substance: LEVETIRACETAM
     Indication: OFF LABEL USE
  2. LEVETIRACETAM. [Suspect]
     Active Substance: LEVETIRACETAM
     Indication: OFF LABEL USE
  3. LEVETIRACETAM. [Suspect]
     Active Substance: LEVETIRACETAM
     Indication: CEREBRAL HAEMORRHAGE
     Dosage: 500-0-500
     Route: 048
     Dates: start: 20180816, end: 2018
  4. IOD [CADEXOMER IODINE] [Suspect]
     Active Substance: CADEXOMER IODINE
     Indication: PRODUCT USED FOR UNKNOWN INDICATION
     Dosage: UNK
  5. GABAPENTIN. [Suspect]
     Active Substance: GABAPENTIN
     Indication: NEURALGIA
     Dosage: 500
     Route: 048
  6. NOVALGIN (METAMIZOLE SODIUM) [Suspect]
     Active Substance: METAMIZOLE SODIUM
     Indication: SCIATICA
     Dosage: UNK
     Route: 042
  7. TRIAM (TRIAMCINOLONE) [Suspect]
     Active Substance: TRIAMCINOLONE
     Indication: SCIATICA
     Dosage: 20 INJ 1 X O.5 AND 2MG 10 ML
     Route: 008
  8. LORAZEPAM. [Suspect]
     Active Substance: LORAZEPAM
     Indication: PRODUCT USED FOR UNKNOWN INDICATION
     Dosage: UNK
  9. LEVETIRACETAM. [Suspect]
     Active Substance: LEVETIRACETAM
     Indication: CEREBRAL HAEMORRHAGE
     Dosage: 500-0-500
     Route: 042
     Dates: start: 20180702, end: 20180709
  10. COTRIM FORTE [Suspect]
     Active Substance: SULFAMETHOXAZOLE\TRIMETHOPRIM
     Indication: CYSTITIS NONINFECTIVE
     Dosage: UNK
     Route: 048
  11. NAROPIN [Suspect]
     Active Substance: ROPIVACAINE HYDROCHLORIDE
     Indication: PAIN IN EXTREMITY
     Dosage: 20 INJ 1 X O.5 AND 2MG 10 ML
     Route: 008

REACTIONS (9)
  - Sopor [Unknown]
  - Somnolence [Unknown]
  - Gamma-glutamyltransferase increased [Unknown]
  - Epilepsy [Unknown]
  - Platelet count decreased [Unknown]
  - Dysphagia [Recovering/Resolving]
  - Cerebral haemorrhage [Unknown]
  - Loss of consciousness [Recovering/Resolving]
  - Off label use [Unknown]

NARRATIVE: CASE EVENT DATE: 201807
